FAERS Safety Report 4623162-X (Version None)
Quarter: 2005Q1

REPORT INFORMATION
  Report Type: 
  Country: None (occurrence: None)
  Receive Date: 20050329
  Receipt Date: 20050314
  Transmission Date: 20050727
  Serious: Yes (Hospitalization)
  Sender: FDA-Public Use
  Company Number: 2004CG02191

PATIENT
  Age: 41 Year
  Sex: Male
  Weight: 70 kg

DRUGS (5)
  1. CRESTOR [Suspect]
     Indication: HYPERCHOLESTEROLAEMIA
     Dosage: 10 MG QD PO
     Route: 048
     Dates: start: 20040401
  2. KARDEGIC/FRA [Concomitant]
  3. DEPAKENE [Concomitant]
  4. FLUDEX [Concomitant]
  5. INSULIN [Concomitant]

REACTIONS (11)
  - ANGINA PECTORIS [None]
  - CEREBROVASCULAR ACCIDENT [None]
  - DIABETES MELLITUS INADEQUATE CONTROL [None]
  - DIABETIC KETOACIDOSIS [None]
  - HEMIPARESIS [None]
  - HYPEREOSINOPHILIC SYNDROME [None]
  - MYOCARDIAL INFARCTION [None]
  - RENAL FAILURE [None]
  - RHABDOMYOLYSIS [None]
  - SKIN DISCOLOURATION [None]
  - VOMITING [None]
